FAERS Safety Report 7489832-3 (Version None)
Quarter: 2011Q2

REPORT INFORMATION
  Report Type: 
  Country: None (occurrence: None)
  Receive Date: 20110519
  Receipt Date: 20090615
  Transmission Date: 20111010
  Serious: No
  Sender: FDA-Public Use
  Company Number: 2009BI018332

PATIENT
  Sex: Female

DRUGS (2)
  1. TYSABRI [Suspect]
     Indication: MULTIPLE SCLEROSIS
     Route: 042
     Dates: start: 20071024, end: 20090625
  2. TYSABRI [Suspect]
     Route: 042
     Dates: start: 20100416

REACTIONS (8)
  - MUSCLE SPASTICITY [None]
  - FATIGUE [None]
  - INTERVERTEBRAL DISC COMPRESSION [None]
  - DISCOMFORT [None]
  - DRUG INEFFECTIVE [None]
  - INTERVERTEBRAL DISC INJURY [None]
  - BACK PAIN [None]
  - MUSCLE SPASMS [None]
